FAERS Safety Report 6688779-X (Version None)
Quarter: 2010Q2

REPORT INFORMATION
  Report Type: 
  Country: None (occurrence: None)
  Receive Date: 20100414
  Receipt Date: 20100408
  Transmission Date: 20101027
  Serious: Yes (Hospitalization)
  Sender: FDA-Public Use
  Company Number: 2010SP020480

PATIENT
  Age: 30 Year
  Sex: Female

DRUGS (2)
  1. DIPROPHOS (BETAMETHASONE SODIUM PHOSPHATE/ DIPROPIONATE /00582101/) [Suspect]
     Indication: DRUG USE FOR UNKNOWN INDICATION
  2. LIDOCAINE [Concomitant]

REACTIONS (1)
  - ANAPHYLACTIC SHOCK [None]
